FAERS Safety Report 11414245 (Version 3)
Quarter: 2016Q1

REPORT INFORMATION
  Report Type: Report from Study
  Country: JP (occurrence: JP)
  Receive Date: 20150824
  Receipt Date: 20160224
  Transmission Date: 20160525
  Serious: Yes (Death, Hospitalization)
  Sender: FDA-Public Use
  Company Number: JP-009507513-1508JPN010244

PATIENT
  Age: 57 Year
  Sex: Male

DRUGS (9)
  1. ALDACTONE [Concomitant]
     Active Substance: SPIRONOLACTONE
     Indication: HEPATIC CIRRHOSIS
     Dosage: 25 MG, QD. FORMULATION: POR
     Route: 048
     Dates: end: 20140528
  2. ASPENON [Concomitant]
     Active Substance: APRINDINE HYDROCHLORIDE
     Indication: ARRHYTHMIA
     Dosage: 40 MG, BID
     Route: 065
     Dates: end: 20140528
  3. ISENTRESS [Suspect]
     Active Substance: RALTEGRAVIR POTASSIUM
     Indication: HIV INFECTION
     Dosage: 800 MG, QD. DIVIDED DOSE FREQUENCY UNKNOWN
     Route: 048
     Dates: start: 20100129, end: 20140528
  4. LASIX [Concomitant]
     Active Substance: FUROSEMIDE
     Indication: HEPATIC CIRRHOSIS
     Dosage: 40 MG, QD
     Route: 065
     Dates: end: 20140528
  5. GASTER [Concomitant]
     Active Substance: FAMOTIDINE
     Indication: GASTRIC ULCER
     Dosage: 40 MG, BID
     Route: 065
     Dates: end: 20140528
  6. TRUVADA [Concomitant]
     Active Substance: EMTRICITABINE\TENOFOVIR DISOPROXIL FUMARATE
     Indication: HIV INFECTION
     Dosage: 1 DF, QD. DIVIDED DOSE FREQUENCY: UNKNOWN
     Route: 048
     Dates: start: 20100129, end: 20140528
  7. BLOPRESS [Concomitant]
     Active Substance: CANDESARTAN CILEXETIL
     Indication: ARRHYTHMIA
     Dosage: 4 MG, QD. FORMULATION: POR
     Route: 048
     Dates: end: 20140528
  8. GLYCYRON [Concomitant]
     Active Substance: AMMONIUM GLYCYRRHIZATE\GLYCINE\METHIONINE
     Indication: HEPATIC CIRRHOSIS
     Dosage: 6 DF, TID
     Route: 048
     Dates: end: 20140528
  9. THYRADIN-S [Concomitant]
     Active Substance: LEVOTHYROXINE
     Indication: HYPOTHYROIDISM
     Dosage: 25 MICROGRAM, QD
     Route: 048
     Dates: end: 20140528

REACTIONS (1)
  - Hepatic cirrhosis [Fatal]

NARRATIVE: CASE EVENT DATE: 20140529
